FAERS Safety Report 5032518-5 (Version None)
Quarter: 2006Q2

REPORT INFORMATION
  Report Type: 
  Country: None (occurrence: None)
  Receive Date: 20060622
  Receipt Date: 20060210
  Transmission Date: 20061013
  Serious: Yes (Hospitalization)
  Sender: FDA-Public Use
  Company Number: US-BRISTOL-MYERS SQUIBB COMPANY-13279260

PATIENT
  Age: 74 Year
  Sex: Female

DRUGS (6)
  1. ABILIFY [Suspect]
     Indication: ANOREXIA
     Route: 047
     Dates: start: 20050817, end: 20060127
  2. ABILIFY [Suspect]
     Indication: BIPOLAR DISORDER
     Route: 047
     Dates: start: 20050817, end: 20060127
  3. ABILIFY [Suspect]
     Indication: SENILE DEMENTIA
     Route: 047
     Dates: start: 20050817, end: 20060127
  4. ZYPREXA [Concomitant]
  5. LEXAPRO [Concomitant]
  6. EXELON [Concomitant]

REACTIONS (6)
  - AMNESIA [None]
  - CONFUSIONAL STATE [None]
  - DIZZINESS [None]
  - GAIT DISTURBANCE [None]
  - PERFORMANCE STATUS DECREASED [None]
  - TREMOR [None]
